FAERS Safety Report 5569901-5 (Version None)
Quarter: 2007Q4

REPORT INFORMATION
  Report Type: 
  Country: None (occurrence: None)
  Receive Date: 20071217
  Receipt Date: 20071204
  Transmission Date: 20080405
  Serious: Yes (Life-Threatening, Hospitalization)
  Sender: FDA-Public Use
  Company Number: CLOF-10794

PATIENT
  Age: 74 Year
  Sex: Male

DRUGS (11)
  1. CLOFARABINE (BLINDED) [Suspect]
     Indication: MYELOID LEUKAEMIA
     Dosage: 40 MG/M2 IV
     Route: 042
     Dates: start: 20071203, end: 20071203
  2. ALLOPURINOL [Concomitant]
  3. ASPIRIN [Concomitant]
  4. CENTRUM [Concomitant]
  5. COLCHICINE [Concomitant]
  6. FLOMAX [Concomitant]
  7. GLIPIZIDE [Concomitant]
  8. LIPITOR [Concomitant]
  9. LISINOPRIL AND HYDROCHLOROTHIAZIDE [Concomitant]
  10. NORVASC [Concomitant]
  11. PREVACID [Concomitant]

REACTIONS (22)
  - ARRHYTHMIA [None]
  - ASTHENIA [None]
  - BLOOD BICARBONATE DECREASED [None]
  - BLOOD PH DECREASED [None]
  - BRADYCARDIA [None]
  - DILATATION ATRIAL [None]
  - FATIGUE [None]
  - HYPERSENSITIVITY [None]
  - HYPONATRAEMIA [None]
  - HYPOTENSION [None]
  - INFECTION [None]
  - LEFT VENTRICULAR HYPERTROPHY [None]
  - METABOLIC ACIDOSIS [None]
  - MULTI-ORGAN FAILURE [None]
  - MYOCARDIAL INFARCTION [None]
  - PCO2 DECREASED [None]
  - PO2 DECREASED [None]
  - RENAL FAILURE [None]
  - RESPIRATORY ACIDOSIS [None]
  - SEPTIC SHOCK [None]
  - THROMBOSIS [None]
  - VENTRICULAR HYPOKINESIA [None]
